FAERS Safety Report 8776547 (Version 1)
Quarter: 2012Q4

REPORT INFORMATION
  Report Type: 
  Country: US (occurrence: US)
  Receive Date: 20120910
  Receipt Date: 20120910
  Transmission Date: 20130627
  Serious: Yes (Hospitalization)
  Sender: FDA-Public Use
  Company Number: US-PFIZER INC-2012219734

PATIENT
  Age: 20 Year
  Sex: Male
  Weight: 90.7 kg

DRUGS (4)
  1. GEODON [Suspect]
     Indication: BIPOLAR I DISORDER
     Dosage: 40 mg, 2x/day
     Dates: start: 200307, end: 2005
  2. TRILEPTAL [Suspect]
     Indication: BIPOLAR I DISORDER
     Dosage: 600 mg, 2x/day
     Dates: start: 200306, end: 2005
  3. SEROQUEL [Suspect]
     Indication: BIPOLAR I DISORDER
     Dosage: UNK
     Dates: start: 200307, end: 200307
  4. ZYPREXA [Suspect]
     Indication: BIPOLAR I DISORDER
     Dosage: UNK
     Dates: start: 200307, end: 200307

REACTIONS (2)
  - Drug ineffective [Recovered/Resolved]
  - Psychotic disorder [Recovered/Resolved]
